FAERS Safety Report 6420895-X (Version None)
Quarter: 2009Q4

REPORT INFORMATION
  Report Type: 
  Country: None (occurrence: None)
  Receive Date: 20091030
  Receipt Date: 20091027
  Transmission Date: 20100525
  Serious: Yes (Life-Threatening)
  Sender: FDA-Public Use
  Company Number: DE-JNJFOC-20091008200

PATIENT
  Age: 16 Year
  Sex: Female

DRUGS (6)
  1. TAVANIC [Suspect]
     Indication: DRUG USE FOR UNKNOWN INDICATION
     Route: 048
     Dates: start: 20090903
  2. RECTODELT [Suspect]
     Indication: DRUG USE FOR UNKNOWN INDICATION
     Route: 065
  3. AMOXI [Concomitant]
     Route: 065
     Dates: start: 20090817
  4. CEFUROXIME [Concomitant]
     Route: 065
     Dates: start: 20090212
  5. MUCOSOLVAN [Concomitant]
     Route: 065
     Dates: start: 20090212
  6. ACETYLCYSTEINE [Concomitant]
     Route: 048

REACTIONS (4)
  - DRUG ERUPTION [None]
  - DYSPNOEA [None]
  - HYPOTENSION [None]
  - TACHYCARDIA [None]
